FAERS Safety Report 9481844 (Version 1)
Quarter: 2013Q3

REPORT INFORMATION
  Report Type: Spontaneous
  Country: US (occurrence: US)
  Receive Date: 20130828
  Receipt Date: 20130828
  Transmission Date: 20140515
  Serious: Yes (Hospitalization)
  Sender: FDA-Public Use
  Company Number: US-AMGEN-USASP2013058954

PATIENT
  Age: 55 Year
  Sex: Female

DRUGS (10)
  1. PROLIA [Suspect]
     Indication: OSTEOPOROSIS POSTMENOPAUSAL
     Route: 065
  2. COPAXONE [Concomitant]
  3. ALBUTEROL                          /00139501/ [Concomitant]
  4. VERAPAMIL [Concomitant]
  5. PEPCID                             /00305201/ [Concomitant]
  6. LOSARTAN [Concomitant]
  7. LYRICA [Concomitant]
  8. LEVOCETIRIZINE [Concomitant]
  9. MONTELUKAST [Concomitant]
  10. VENTOLIN                           /00139501/ [Concomitant]

REACTIONS (5)
  - Sinusitis [Unknown]
  - Lung infection [Unknown]
  - Oxygen saturation decreased [Unknown]
  - Hypertension [Unknown]
  - Dyspnoea [Unknown]
